FAERS Safety Report 22014674 (Version 1)
Quarter: 2023Q1

REPORT INFORMATION
  Report Type: Report from Study
  Country: IT (occurrence: IT)
  Receive Date: 20230221
  Receipt Date: 20230221
  Transmission Date: 20230418
  Serious: Yes (Other)
  Sender: FDA-Public Use
  Company Number: None

PATIENT
  Age: 57 Year
  Sex: Male

DRUGS (4)
  1. IRBESARTAN [Suspect]
     Active Substance: IRBESARTAN
     Indication: Hypertension
     Dosage: 150 MILLIGRAM DAILY; DOSAGE: 150, UNIT OF MEASURE: MILLIGRAMS, FREQUENCY OF ADMINISTRATION: DAILY, R
     Route: 048
  2. XIGDUO XR [Suspect]
     Active Substance: DAPAGLIFLOZIN PROPANEDIOL\METFORMIN HYDROCHLORIDE
     Indication: Type 2 diabetes mellitus
     Dosage: 1 DOSAGE FORMS DAILY; DOSAGE: 1, UNIT OF MEASURE: DOSING UNIT, FREQUENCY OF ADMINISTRATION: DAILY, R
     Route: 048
  3. ANAFRANIL [Concomitant]
     Active Substance: CLOMIPRAMINE HYDROCHLORIDE
     Indication: Depression
     Dosage: DOSAGE: 1, UNIT OF MEASURE: DOSING UNIT, ROUTE OF ADMINISTRATION: ORAL
     Route: 048
  4. TEGRETOL [Concomitant]
     Active Substance: CARBAMAZEPINE
     Indication: Bipolar disorder
     Dosage: ROUTE OF ADMINISTRATION: ORAL
     Route: 048

REACTIONS (3)
  - Loss of consciousness [Unknown]
  - Dizziness [Unknown]
  - Abdominal pain [Unknown]

NARRATIVE: CASE EVENT DATE: 20220809
